FAERS Safety Report 4926796-8 (Version None)
Quarter: 2006Q1

REPORT INFORMATION
  Report Type: 
  Country: None (occurrence: None)
  Receive Date: 20060228
  Receipt Date: 20050617
  Transmission Date: 20060701
  Serious: No
  Sender: FDA-Public Use
  Company Number: US-GLAXOSMITHKLINE-A0563160A

PATIENT
  Age: 61 Year
  Sex: Female

DRUGS (4)
  1. LAMICTAL [Suspect]
     Indication: BIPOLAR DISORDER
     Dosage: 100MG PER DAY
     Route: 048
     Dates: start: 20041215
  2. VASOTEC RPD [Concomitant]
     Route: 048
  3. DYAZIDE [Concomitant]
     Dosage: 1CAP PER DAY
     Route: 048
  4. RHINOCORT [Concomitant]

REACTIONS (3)
  - CLUMSINESS [None]
  - COORDINATION ABNORMAL [None]
  - DIZZINESS [None]
